FAERS Safety Report 11543578 (Version 8)
Quarter: 2015Q4

REPORT INFORMATION
  Report Type: Spontaneous
  Country: US (occurrence: US)
  Receive Date: 20150923
  Receipt Date: 20151209
  Transmission Date: 20160304
  Serious: Yes (Hospitalization)
  Sender: FDA-Public Use
  Company Number: US-ACTAVIS-2015-20342

PATIENT
  Age: 31 Year
  Sex: Female
  Weight: 202 kg

DRUGS (6)
  1. ASPIRIN (UNKNOWN) [Suspect]
     Active Substance: ASPIRIN
     Indication: PRODUCT USED FOR UNKNOWN INDICATION
     Dosage: UNK
     Route: 048
  2. CETIRIZINE HYDROCHLORIDE (AELLC) [Suspect]
     Active Substance: CETIRIZINE HYDROCHLORIDE
     Indication: PRODUCT USED FOR UNKNOWN INDICATION
     Dosage: UNK
     Route: 048
  3. PARACETAMOL (UNKNOWN) [Suspect]
     Active Substance: ACETAMINOPHEN
     Indication: PRODUCT USED FOR UNKNOWN INDICATION
     Dosage: UNK
     Route: 048
  4. CEFALEXIN (UNKNOWN) [Suspect]
     Active Substance: CEPHALEXIN
     Indication: PRODUCT USED FOR UNKNOWN INDICATION
     Dosage: UNK
     Route: 048
  5. IBUPROFEN (AMALLC) [Suspect]
     Active Substance: IBUPROFEN
     Indication: PRODUCT USED FOR UNKNOWN INDICATION
     Dosage: UNK
     Route: 048
  6. PREDNISONE (WATSON LABORATORIES) [Suspect]
     Active Substance: PREDNISONE
     Indication: PRODUCT USED FOR UNKNOWN INDICATION
     Dosage: UNK
     Route: 048

REACTIONS (6)
  - Encephalopathy [Recovered/Resolved]
  - Coagulopathy [Recovered/Resolved]
  - Acute hepatic failure [Recovered/Resolved]
  - Liver injury [Recovered/Resolved]
  - Drug abuse [Recovered/Resolved]
  - Renal failure [Recovered/Resolved]
